FAERS Safety Report 5644869-1 (Version None)
Quarter: 2008Q1

REPORT INFORMATION
  Report Type: 
  Country: None (occurrence: None)
  Receive Date: 20080229
  Receipt Date: 20070926
  Transmission Date: 20080703
  Serious: No
  Sender: FDA-Public Use
  Company Number: A0684369A

PATIENT
  Age: 54 Year
  Sex: Male

DRUGS (4)
  1. VALTREX [Suspect]
     Indication: GENITAL HERPES
     Dosage: 1MG TWICE PER DAY
     Route: 048
     Dates: start: 20070924
  2. ASPIRIN [Concomitant]
  3. PRAVASTATIN [Concomitant]
  4. AMLODIPINE [Concomitant]

REACTIONS (2)
  - DRUG INEFFECTIVE [None]
  - EYE PAIN [None]
